FAERS Safety Report 7314420-9 (Version None)
Quarter: 2011Q1

REPORT INFORMATION
  Report Type: 
  Country: None (occurrence: None)
  Receive Date: 20110225
  Receipt Date: 20100913
  Transmission Date: 20110831
  Serious: No
  Sender: FDA-Public Use
  Company Number: US-MYLANLABS-2010S1014929

PATIENT
  Age: 46 Year
  Sex: Female
  Weight: 55 kg

DRUGS (4)
  1. SYNTHROID [Concomitant]
  2. AMNESTEEM [Suspect]
     Indication: ACNE
     Route: 048
     Dates: start: 20100513, end: 20100715
  3. AMNESTEEM [Suspect]
     Route: 048
     Dates: start: 20100513, end: 20100715
  4. YAZ /01502501/ [Concomitant]

REACTIONS (3)
  - MYALGIA [None]
  - ARTHRALGIA [None]
  - FATIGUE [None]
